FAERS Safety Report 23135990 (Version 1)
Quarter: 2023Q4

REPORT INFORMATION
  Report Type: Spontaneous
  Country: GB (occurrence: GB)
  Receive Date: 20231102
  Receipt Date: 20231102
  Transmission Date: 20240110
  Serious: Yes (Other)
  Sender: FDA-Public Use
  Company Number: GB-CELLTRION INC.-2023GB021075

PATIENT

DRUGS (12)
  1. RITUXIMAB [Suspect]
     Active Substance: RITUXIMAB
     Indication: Diffuse large B-cell lymphoma
     Dosage: FIRST LINE SYSTEMIC TREATMENT WITH CHEMO(IMMUNO)THERAPY, R-CHOP (RITUXIMAB (LOT NUMBER: ASKED BUT UN
     Route: 065
     Dates: start: 20220701, end: 20221101
  2. RITUXIMAB [Suspect]
     Active Substance: RITUXIMAB
     Dosage: SECOND LINE OF SYSTEMIC TREATMENT WITH R-GDP (RITUXIMAB (LOT NUMBER: ASKED BUT UNKNOWN), GEMCITABINE
     Route: 065
     Dates: start: 20221220, end: 20230128
  3. RITUXIMAB [Suspect]
     Active Substance: RITUXIMAB
     Dosage: THIRD LINE OF SYSTEMIC TREATMENT WITH P-BR (POLATUZUMAB, BENDAMUSTINE AND RITUXIMAB)
     Route: 065
     Dates: start: 20230209, end: 20230210
  4. BENDAMUSTINE [Suspect]
     Active Substance: BENDAMUSTINE
     Indication: Diffuse large B-cell lymphoma
     Dosage: THIRD LINE OF SYSTEMIC TREATMENT WITH P-BR (POLATUZUMAB, BENDAMUSTINE AND RITUXIMAB)
     Route: 065
     Dates: start: 20230209, end: 20230210
  5. CISPLATIN [Suspect]
     Active Substance: CISPLATIN
     Indication: Diffuse large B-cell lymphoma
     Dosage: SECOND LINE OF SYSTEMIC TREATMENT WITH R-GDP (RITUXIMAB (LOT NUMBER: ASKED BUT UNKNOWN), GEMCITABINE
     Route: 065
     Dates: start: 20221220, end: 20230128
  6. CYCLOPHOSPHAMIDE [Suspect]
     Active Substance: CYCLOPHOSPHAMIDE
     Indication: Diffuse large B-cell lymphoma
     Dosage: FIRST LINE SYSTEMIC TREATMENT WITH CHEMO(IMMUNO)THERAPY, R-CHOP (RITUXIMAB (LOT NUMBER: ASKED BUT UN
     Route: 065
     Dates: start: 20220701, end: 20221101
  7. DEXAMETHASONE [Suspect]
     Active Substance: DEXAMETHASONE
     Indication: Diffuse large B-cell lymphoma
     Dosage: SECOND LINE OF SYSTEMIC TREATMENT WITH R-GDP (RITUXIMAB (LOT NUMBER: ASKED BUT UNKNOWN), GEMCITABINE
     Route: 065
     Dates: start: 20221220, end: 20230128
  8. DOXORUBICIN [Suspect]
     Active Substance: DOXORUBICIN
     Indication: Diffuse large B-cell lymphoma
     Dosage: FIRST LINE SYSTEMIC TREATMENT WITH CHEMO(IMMUNO)THERAPY, R-CHOP (RITUXIMAB (LOT NUMBER: ASKED BUT UN
     Route: 065
     Dates: start: 20220701, end: 20221101
  9. GEMCITABINE [Suspect]
     Active Substance: GEMCITABINE
     Indication: Diffuse large B-cell lymphoma
     Dosage: SECOND LINE OF SYSTEMIC TREATMENT WITH R-GDP (RITUXIMAB (LOT NUMBER: ASKED BUT UNKNOWN), GEMCITABINE
     Route: 065
     Dates: start: 20221220, end: 20230128
  10. POLIVY [Suspect]
     Active Substance: POLATUZUMAB VEDOTIN-PIIQ
     Indication: Diffuse large B-cell lymphoma
     Dosage: THIRD LINE OF SYSTEMIC TREATMENT WITH P-BR (POLATUZUMAB, BENDAMUSTINE AND RITUXIMAB)
     Route: 065
     Dates: start: 20230209, end: 20230210
  11. PREDNISONE [Suspect]
     Active Substance: PREDNISONE
     Indication: Diffuse large B-cell lymphoma
     Dosage: FIRST LINE SYSTEMIC TREATMENT WITH CHEMO(IMMUNO)THERAPY, R-CHOP (RITUXIMAB (LOT NUMBER: ASKED BUT UN
     Route: 065
     Dates: start: 20220701, end: 20221101
  12. VINCRISTINE [Suspect]
     Active Substance: VINCRISTINE
     Indication: Diffuse large B-cell lymphoma
     Dosage: FIRST LINE SYSTEMIC TREATMENT WITH CHEMO(IMMUNO)THERAPY, R-CHOP (RITUXIMAB (LOT NUMBER: ASKED BUT UN
     Route: 065
     Dates: start: 20220701, end: 20221101

REACTIONS (2)
  - Disease progression [Unknown]
  - Product use issue [Unknown]
